FAERS Safety Report 7745807-8 (Version None)
Quarter: 2011Q3

REPORT INFORMATION
  Report Type: 
  Country: None (occurrence: None)
  Receive Date: 20110913
  Receipt Date: 20110901
  Transmission Date: 20111222
  Serious: Yes (Disabling, Other)
  Sender: FDA-Public Use
  Company Number: DE-UCBSA-040895

PATIENT
  Age: 47 Year
  Sex: Female

DRUGS (5)
  1. LACOSAMIDE [Suspect]
  2. LACOSAMIDE [Suspect]
  3. KEPPRA [Suspect]
     Indication: PARTIAL SEIZURES
  4. LACOSAMIDE [Suspect]
  5. LACOSAMIDE [Suspect]
     Indication: PARTIAL SEIZURES
     Dosage: IN THE MORNINGS

REACTIONS (11)
  - DISTURBANCE IN ATTENTION [None]
  - CEREBELLAR SYNDROME [None]
  - PERFORMANCE STATUS DECREASED [None]
  - DISABILITY [None]
  - FATIGUE [None]
  - HEADACHE [None]
  - MEMORY IMPAIRMENT [None]
  - DIZZINESS [None]
  - CONVULSION [None]
  - HYPOAESTHESIA [None]
  - BALANCE DISORDER [None]
